FAERS Safety Report 4417546-2 (Version None)
Quarter: 2004Q2

REPORT INFORMATION
  Report Type: 
  Country: None (occurrence: None)
  Receive Date: 20040623
  Receipt Date: 20040412
  Transmission Date: 20050107
  Serious: Yes (Other)
  Sender: FDA-Public Use
  Company Number: PHEH2004US03165

PATIENT
  Age: 3 Year
  Sex: Female
  Weight: 27.2 kg

DRUGS (3)
  1. TRILEPTAL [Suspect]
     Indication: COMPLEX PARTIAL SEIZURES
     Dosage: 10 ML, BID, ORAL
     Route: 048
     Dates: start: 20030601
  2. BIAXIN [Suspect]
     Indication: PNEUMONIA
     Dosage: 0.75 TSP, BID, ORAL
     Route: 048
     Dates: start: 20040315, end: 20040317
  3. OMNICEF [Concomitant]

REACTIONS (8)
  - ATAXIA [None]
  - DYSSTASIA [None]
  - EAR INFECTION [None]
  - GAIT DISTURBANCE [None]
  - LETHARGY [None]
  - PNEUMONIA [None]
  - SOMNOLENCE [None]
  - SUDDEN ONSET OF SLEEP [None]
